FAERS Safety Report 4679016-6 (Version None)
Quarter: 2005Q2

REPORT INFORMATION
  Report Type: 
  Country: None (occurrence: None)
  Receive Date: 20050525
  Receipt Date: 20050127
  Transmission Date: 20051028
  Serious: No
  Sender: FDA-Public Use
  Company Number: 212065

PATIENT
  Age: 45 Year
  Sex: Female

DRUGS (1)
  1. RAPTIVA [Suspect]
     Dosage: 0.7 MG
     Dates: start: 20050126

REACTIONS (1)
  - HEADACHE [None]
